FAERS Safety Report 9299919 (Version 1)
Quarter: 2012Q4

REPORT INFORMATION
  Report Type: Spontaneous
  Country: US (occurrence: None)
  Receive Date: 20121106
  Receipt Date: 20121106
  Transmission Date: 20130627
  Serious: Yes (Hospitalization, Other)
  Sender: FDA-Public Use
  Company Number: JPI-P-012791

PATIENT
  Age: 50 Year
  Sex: Male

DRUGS (29)
  1. XYREM (500 MILLIGRAM/MILLILITERS, SOLUTION) (SODIUM OXYBATE) [Suspect]
     Indication: CHRONIC INSOMNIA
     Route: 048
     Dates: start: 20100513, end: 201006
  2. XYREM (500 MILLIGRAM/MILLILITERS, SOLUTION) (SODIUM OXYBATE) [Suspect]
     Indication: CHRONIC INSOMNIA
     Route: 048
     Dates: start: 201006, end: 201009
  3. XYREM (500 MILLIGRAM/MILLILITERS, SOLUTION) (SODIUM OXYBATE) [Suspect]
     Indication: CHRONIC INSOMNIA
     Dosage: 3 gm,WITH 1 WK INTERRUPTIONS W/ DALMANE), Oral
     Dates: start: 201009, end: 201010
  4. XYREM (500 MILLIGRAM/MILLILITERS, SOLUTION) (SODIUM OXYBATE) [Suspect]
     Indication: CHRONIC INSOMNIA
     Route: 048
     Dates: start: 201010, end: 20101027
  5. XYREM (500 MILLIGRAM/MILLILITERS, SOLUTION) (SODIUM OXYBATE) [Suspect]
     Indication: CHRONIC INSOMNIA
     Route: 048
     Dates: start: 201011, end: 2010
  6. XYREM (500 MILLIGRAM/MILLILITERS, SOLUTION) (SODIUM OXYBATE) [Suspect]
     Indication: CHRONIC INSOMNIA
     Dosage: 3-3.5 GM TWICE NIGHTLY), Oral
     Dates: start: 2010, end: 201012
  7. XYREM (500 MILLIGRAM/MILLILITERS, SOLUTION) (SODIUM OXYBATE) [Suspect]
     Indication: CHRONIC INSOMNIA
     Route: 048
     Dates: start: 201012, end: 2011
  8. XYREM (500 MILLIGRAM/MILLILITERS, SOLUTION) (SODIUM OXYBATE) [Suspect]
     Indication: CHRONIC INSOMNIA
     Dosage: (NO MORE THAN 2.75 GM PER DOSE), Oral
     Dates: start: 201102, end: 201103
  9. XYREM (500 MILLIGRAM/MILLILITERS, SOLUTION) (SODIUM OXYBATE) [Suspect]
     Indication: CHRONIC INSOMNIA
     Route: 048
     Dates: start: 201103
  10. XYREM (500 MILLIGRAM/MILLILITERS, SOLUTION) (SODIUM OXYBATE) [Suspect]
     Indication: CHRONIC INSOMNIA
     Route: 048
  11. ALPRAZOLAM [Suspect]
     Indication: DRUG USE FOR UNKNOWN INDICATION
     Dates: end: 201010
  12. ALPRAZOLAM [Suspect]
     Indication: DRUG USE FOR UNKNOWN INDICATION
     Dates: start: 201010, end: 201010
  13. PHENERGAN W/ CODEINE [Suspect]
     Indication: DRUG USE FOR UNKNOWN INDICATION
  14. ZOLPIDEM [Suspect]
     Indication: DRUG USE FOR UNKNOWN INDICATION
  15. FLUOXETINE [Suspect]
     Indication: DRUG USE FOR UNKNOWN INDICATION
  16. DOXEPIN [Suspect]
     Indication: DRUG USE FOR UNKNOWN INDICATION
  17. GABAPENTIN [Suspect]
     Indication: DRUG USE FOR UNKNOWN INDICATION
  18. FLURAZEPAM [Concomitant]
  19. CARISOPRODOL [Concomitant]
  20. HYDROCODONE/ACETAMINOPHEN [Concomitant]
  21. LORAZEPAM [Concomitant]
  22. MELATONIN [Concomitant]
  23. ZOLMITRIPTAN [Concomitant]
  24. SIMVASTATIN [Concomitant]
  25. MOMETASONE [Concomitant]
  26. IBUPROFEN [Concomitant]
  27. SUMATRIPTAN [Concomitant]
  28. VENLAFAXINE [Concomitant]
  29. AMITRIPTYLINE [Concomitant]

REACTIONS (12)
  - Confusional state [None]
  - Feeling abnormal [None]
  - Headache [None]
  - Nausea [None]
  - Weight decreased [None]
  - Drug tolerance [None]
  - Drug effect decreased [None]
  - Mental status changes [None]
  - Insomnia [None]
  - Stress [None]
  - Blood pressure increased [None]
  - Multiple allergies [None]
